FAERS Safety Report 8482006-9 (Version None)
Quarter: 2012Q3

REPORT INFORMATION
  Report Type: 
  Country: None (occurrence: None)
  Receive Date: 20120702
  Receipt Date: 20120626
  Transmission Date: 20120928
  Serious: Yes (Hospitalization, Other)
  Sender: FDA-Public Use
  Company Number: PHHY2012ES054609

PATIENT
  Age: 60 Year
  Sex: Male

DRUGS (2)
  1. CERTICAN [Suspect]
     Indication: LUNG TRANSPLANT
     Dosage: 1 DF, BID
     Dates: start: 20120301
  2. TACROLIMUS [Concomitant]

REACTIONS (4)
  - PULMONARY HYPERTENSION [None]
  - MITRAL VALVE INCOMPETENCE [None]
  - MITRAL VALVE PROLAPSE [None]
  - PLEURAL EFFUSION [None]
